FAERS Safety Report 14679969 (Version 2)
Quarter: 2018Q1

REPORT INFORMATION
  Report Type: Spontaneous
  Country: JP (occurrence: JP)
  Receive Date: 20180326
  Receipt Date: 20180330
  Transmission Date: 20180509
  Serious: Yes (Other)
  Sender: FDA-Public Use
  Company Number: JP-009507513-1803JPN010597

PATIENT
  Sex: Female

DRUGS (6)
  1. GLACTIV [Suspect]
     Active Substance: SITAGLIPTIN
     Indication: TYPE 2 DIABETES MELLITUS
     Dosage: 50 MG, ONCE A DAY
     Route: 048
     Dates: start: 20170119, end: 20171003
  2. GASTER [Concomitant]
     Active Substance: FAMOTIDINE
  3. THYRADIN [Concomitant]
     Active Substance: LEVOTHYROXINE
  4. LIPOZART [Concomitant]
  5. CEROCRAL [Concomitant]
     Active Substance: IFENPRODIL
  6. AMLODIN (AMLODIPINE BESYLATE) [Concomitant]
     Active Substance: AMLODIPINE BESYLATE

REACTIONS (1)
  - Colitis ischaemic [Recovered/Resolved]

NARRATIVE: CASE EVENT DATE: 20170813
